FAERS Safety Report 8488100-0 (Version None)
Quarter: 2012Q3

REPORT INFORMATION
  Report Type: 
  Country: None (occurrence: None)
  Receive Date: 20120705
  Receipt Date: 20120626
  Transmission Date: 20120928
  Serious: Yes (Other)
  Sender: FDA-Public Use
  Company Number: US-SANOFI-AVENTIS-2012SA044501

PATIENT
  Age: 91 Year
  Sex: Male

DRUGS (2)
  1. PLAVIX [Suspect]
     Route: 048
  2. ASPIRIN [Suspect]
     Route: 048

REACTIONS (6)
  - CELLULITIS [None]
  - ECCHYMOSIS [None]
  - ERYTHEMA [None]
  - OEDEMA PERIPHERAL [None]
  - GOUT [None]
  - PAIN IN EXTREMITY [None]
